FAERS Safety Report 5139583-5 (Version None)
Quarter: 2006Q4

REPORT INFORMATION
  Report Type: 
  Country: None (occurrence: None)
  Receive Date: 20061024
  Receipt Date: 20061018
  Transmission Date: 20070319
  Serious: Yes (Death)
  Sender: FDA-Public Use
  Company Number: 2006-143565-NL

PATIENT
  Age: 19 Year
  Sex: Male

DRUGS (2)
  1. DANAPAROID SODIUM [Suspect]
     Indication: DISSEMINATED INTRAVASCULAR COAGULATION
     Dosage: INTRAVENOUS DRIP
     Route: 041
     Dates: start: 20060307, end: 20060307
  2. PREDNISOLONE [Concomitant]

REACTIONS (1)
  - CEREBRAL HAEMORRHAGE [None]
